FAERS Safety Report 6336501-9 (Version None)
Quarter: 2009Q3

REPORT INFORMATION
  Report Type: 
  Country: None (occurrence: None)
  Receive Date: 20090901
  Receipt Date: 20090824
  Transmission Date: 20100115
  Serious: Yes (Hospitalization, Other)
  Sender: FDA-Public Use
  Company Number: US-BAYER-200913438BCC

PATIENT
  Age: 59 Year
  Sex: Male
  Weight: 98 kg

DRUGS (4)
  1. BAYER CHEWABLE ASPIRIN CHERRY [Suspect]
     Indication: MIGRAINE
     Dosage: CONSUMER TOOK 1 TABLET ONCE OR TWICE
     Route: 048
     Dates: start: 19990101, end: 19990101
  2. DOXAZOSIN [Concomitant]
     Route: 065
  3. NEXIUM [Concomitant]
     Dosage: TOTAL DAILY DOSE: 40 MG  UNIT DOSE: 40 MG
     Route: 065
  4. FOSINOPRIL SODIUM [Concomitant]
     Dosage: TOTAL DAILY DOSE: 10 MG  UNIT DOSE: 10 MG
     Route: 048

REACTIONS (2)
  - GASTRIC HAEMORRHAGE [None]
  - GASTRIC ULCER [None]
